FAERS Safety Report 7379068-9 (Version None)
Quarter: 2011Q1

REPORT INFORMATION
  Report Type: 
  Country: None (occurrence: None)
  Receive Date: 20110328
  Receipt Date: 20110303
  Transmission Date: 20110831
  Serious: No
  Sender: FDA-Public Use
  Company Number: US-B.I. PHARMACEUTICALS,INC./RIDGEFIELD-2011-BP-00430BP

PATIENT
  Sex: Male

DRUGS (19)
  1. PRADAXA [Suspect]
     Indication: ATRIAL FIBRILLATION
     Dosage: 150 MG
     Route: 048
     Dates: start: 20101218
  2. CALCIUM [Concomitant]
  3. ASCORBIC ACID [Concomitant]
  4. NORVASC [Concomitant]
     Indication: HYPERTENSION
  5. VITAMIN D [Concomitant]
  6. PRANDIN [Concomitant]
  7. FLOMAX [Concomitant]
     Dosage: 0.8 MG
  8. LASIX [Concomitant]
     Indication: RENAL FAILURE
  9. IRON [Concomitant]
  10. SENECOT S [Concomitant]
  11. COREG [Concomitant]
     Indication: HYPERTENSION
  12. SYNTHROID [Concomitant]
     Indication: HYPOTHYROIDISM
  13. ALLOPURINOL [Concomitant]
  14. COLACE [Concomitant]
  15. PROZAC [Concomitant]
     Indication: DEPRESSION
  16. OMEPRAZOLE [Concomitant]
     Dosage: 40 MG
  17. HUMALIN [Concomitant]
     Indication: DIABETES MELLITUS
  18. PLAVIX [Concomitant]
     Indication: ATRIAL FIBRILLATION
  19. INSULIN [Concomitant]

REACTIONS (2)
  - GINGIVAL BLEEDING [None]
  - BLOOD GLUCOSE INCREASED [None]
